FAERS Safety Report 16474506 (Version 11)
Quarter: 2019Q3

REPORT INFORMATION
  Report Type: Report from Study
  Country: FR (occurrence: FR)
  Receive Date: 20190625
  Receipt Date: 20190808
  Transmission Date: 20191004
  Serious: Yes (Death, Hospitalization)
  Sender: FDA-Public Use
  Company Number: FR-EISAI MEDICAL RESEARCH-EC-2019-058162

PATIENT
  Age: 69 Year
  Sex: Male
  Weight: 82.9 kg

DRUGS (11)
  1. METFORMIN [Concomitant]
     Active Substance: METFORMIN HYDROCHLORIDE
     Dates: start: 201711
  2. LENVATINIB [Suspect]
     Active Substance: LENVATINIB
     Route: 048
     Dates: start: 20190606, end: 20190618
  3. PEMBROLIZUMAB. [Suspect]
     Active Substance: PEMBROLIZUMAB
     Indication: HEPATOCELLULAR CARCINOMA
     Dosage: BLINDED
     Route: 041
     Dates: start: 20190425, end: 20190516
  4. PEMBROLIZUMAB. [Suspect]
     Active Substance: PEMBROLIZUMAB
     Dosage: BLINDED
     Route: 041
     Dates: start: 20190605, end: 20190605
  5. TRAMADOL HYDROCHLORIDE. [Concomitant]
     Active Substance: TRAMADOL HYDROCHLORIDE
     Dates: start: 20190530
  6. UREA CREAM [Concomitant]
     Active Substance: UREA
     Dates: start: 20190605
  7. BETNEVAL [Concomitant]
     Active Substance: BETAMETHASONE VALERATE
     Dates: start: 20190530
  8. LENVATINIB [Suspect]
     Active Substance: LENVATINIB
     Indication: HEPATOCELLULAR CARCINOMA
     Dosage: 12 MILLIGRAM (BODY WEIGHT GREATER OR EQUAL THAN 60 KG, FLUCTUATED DOSE)
     Route: 048
     Dates: start: 20190425, end: 20190605
  9. NIFLURIL [Concomitant]
     Dates: start: 20190510
  10. ACETAMINOPHEN. [Concomitant]
     Active Substance: ACETAMINOPHEN
     Dates: start: 20190517
  11. MAGNEVIE B6 [Concomitant]
     Dates: start: 20190430

REACTIONS (1)
  - Hepatic encephalopathy [Fatal]

NARRATIVE: CASE EVENT DATE: 20190619
